FAERS Safety Report 6257527-X (Version None)
Quarter: 2009Q3

REPORT INFORMATION
  Report Type: 
  Country: None (occurrence: None)
  Receive Date: 20090706
  Receipt Date: 20090630
  Transmission Date: 20100115
  Serious: Yes (Hospitalization)
  Sender: FDA-Public Use
  Company Number: FR-BRISTOL-MYERS SQUIBB COMPANY-14687602

PATIENT
  Age: 75 Year
  Sex: Female

DRUGS (11)
  1. COUMADIN [Suspect]
     Dosage: RECHALLENGD TO 2MG/D FROM 12-NOV-08.
     Dates: end: 20081106
  2. COLCHIMAX [Suspect]
     Indication: GOUT
     Dosage: 1 DF = 3 TABS ON 31OCT08, 2TABS ON 1NOV08, 1 TAB ON 2NOV08.
     Dates: start: 20081031, end: 20081102
  3. TAHOR [Suspect]
  4. LASIX [Suspect]
     Dosage: STARTED AT 60MG/D
     Dates: start: 20081106
  5. CARDENSIEL [Suspect]
  6. STABLON [Suspect]
  7. ZOLPIDEM TARTRATE [Suspect]
  8. TRIATEC [Suspect]
     Dosage: REDUCED TO 5MG/D FROM 7NOV08
  9. PULMICORT-100 [Suspect]
     Dosage: INHALATION
  10. SPIRIVA [Suspect]
  11. DIFFU-K [Suspect]
     Dates: end: 20081114

REACTIONS (5)
  - DEHYDRATION [None]
  - DIARRHOEA [None]
  - GASTROINTESTINAL DISORDER [None]
  - NAUSEA [None]
  - VOMITING [None]
